FAERS Safety Report 12634682 (Version 1)
Quarter: 2016Q3

REPORT INFORMATION
  Report Type: Spontaneous
  Country: CA (occurrence: CA)
  Receive Date: 20160808
  Receipt Date: 20160808
  Transmission Date: 20161109
  Serious: Yes (Other)
  Sender: FDA-Public Use
  Company Number: CA-BAUSCH-BL-2016-018763

PATIENT
  Age: 6 Year
  Sex: Female

DRUGS (1)
  1. METRONIDAZOLE. [Suspect]
     Active Substance: METRONIDAZOLE
     Indication: INFECTION PARASITIC
     Route: 048

REACTIONS (3)
  - Lethargy [Recovered/Resolved]
  - Speech disorder [Recovered/Resolved]
  - Catatonia [Recovered/Resolved]
